FAERS Safety Report 11346574 (Version 1)
Quarter: 2015Q3

REPORT INFORMATION
  Report Type: Spontaneous
  Country: US (occurrence: US)
  Receive Date: 20150803
  Receipt Date: 20150803
  Transmission Date: 20151125
  Serious: No
  Sender: FDA-Public Use
  Company Number: US-ELI_LILLY_AND_COMPANY-US201009000716

PATIENT
  Sex: Male

DRUGS (3)
  1. SEROQUEL [Concomitant]
     Active Substance: QUETIAPINE FUMARATE
  2. ZYPREXA [Suspect]
     Active Substance: OLANZAPINE
     Dosage: 5 MG, QOD
  3. ZYPREXA [Suspect]
     Active Substance: OLANZAPINE
     Indication: MANIA
     Dosage: 5 MG, DAILY (1/D)

REACTIONS (4)
  - Aggression [Unknown]
  - Off label use [Not Recovered/Not Resolved]
  - Abnormal behaviour [Unknown]
  - Inappropriate schedule of drug administration [Not Recovered/Not Resolved]
